FAERS Safety Report 7621628-1 (Version None)
Quarter: 2011Q3

REPORT INFORMATION
  Report Type: 
  Country: None (occurrence: None)
  Receive Date: 20110719
  Receipt Date: 20110708
  Transmission Date: 20111222
  Serious: Yes (Death, Hospitalization, Other)
  Sender: FDA-Public Use
  Company Number: US-BAXTER-2011BH021412

PATIENT
  Sex: Male

DRUGS (3)
  1. DIANEAL [Suspect]
     Indication: PERITONEAL DIALYSIS
     Route: 033
     Dates: start: 20100101, end: 20110301
  2. INSULIN [Concomitant]
     Indication: PRODUCT USED FOR UNKNOWN INDICATION
     Route: 065
  3. DIANEAL [Suspect]
     Indication: PERITONEAL DIALYSIS
     Route: 033
     Dates: start: 20100101, end: 20110201

REACTIONS (6)
  - BLOOD GLUCOSE ABNORMAL [None]
  - CEREBRAL HAEMORRHAGE [None]
  - PERITONEAL DIALYSIS COMPLICATION [None]
  - DEEP VEIN THROMBOSIS [None]
  - PERITONITIS BACTERIAL [None]
  - FALL [None]
